FAERS Safety Report 11318466 (Version 2)
Quarter: 2015Q3

REPORT INFORMATION
  Report Type: Spontaneous
  Country: IT (occurrence: IT)
  Receive Date: 20150729
  Receipt Date: 20150907
  Transmission Date: 20151125
  Serious: Yes (Other)
  Sender: FDA-Public Use
  Company Number: PHHY2015IT087089

PATIENT
  Age: 42 Year
  Sex: Female

DRUGS (1)
  1. TRAMADOL. [Suspect]
     Active Substance: TRAMADOL
     Indication: MUSCULOSKELETAL PAIN
     Dosage: 20 GTT, QD
     Route: 048
     Dates: start: 20150504, end: 20150511

REACTIONS (5)
  - Erythema [Recovering/Resolving]
  - Chest pain [Recovering/Resolving]
  - Asthenia [Recovering/Resolving]
  - Drug intolerance [Unknown]
  - Nausea [Recovering/Resolving]

NARRATIVE: CASE EVENT DATE: 20150510
